FAERS Safety Report 24169773 (Version 5)
Quarter: 2025Q3

REPORT INFORMATION
  Report Type: Report from Study
  Country: US (occurrence: US)
  Receive Date: 20240803
  Receipt Date: 20250821
  Transmission Date: 20251021
  Serious: Yes (Death)
  Sender: ABBVIE
  Company Number: US-ABBVIE-5864785

PATIENT
  Age: 71 Year
  Sex: Male

DRUGS (5)
  1. VENCLEXTA [Suspect]
     Active Substance: VENETOCLAX
     Indication: Chronic lymphocytic leukaemia
     Dosage: WEEK 1 ?STRENGTH: 10MG TABS?LAST ADMIN DATE 2024
     Route: 048
     Dates: start: 20240105
  2. VENCLEXTA [Suspect]
     Active Substance: VENETOCLAX
     Indication: Chronic lymphocytic leukaemia
     Dosage: 50MG ?WEEK 2
     Route: 048
     Dates: start: 2024, end: 2024
  3. VENCLEXTA [Suspect]
     Active Substance: VENETOCLAX
     Indication: Chronic lymphocytic leukaemia
     Dosage: WEEK 3 ?100MG
     Route: 048
     Dates: start: 2024, end: 2024
  4. VENCLEXTA [Suspect]
     Active Substance: VENETOCLAX
     Indication: Chronic lymphocytic leukaemia
     Dosage: WEEK 4  ?STRENGTH: 100MG 2 TABLETS OF 100 MG
     Route: 048
     Dates: start: 2024, end: 2024
  5. VENCLEXTA [Suspect]
     Active Substance: VENETOCLAX
     Indication: Chronic lymphocytic leukaemia
     Dosage: STRENGTH: 100MG, 4 TABLETS OF 100 MG
     Route: 048
     Dates: start: 2024, end: 2024

REACTIONS (1)
  - Death [Fatal]

NARRATIVE: CASE EVENT DATE: 20240104
